FAERS Safety Report 14284372 (Version 1)
Quarter: 2017Q4

REPORT INFORMATION
  Report Type: Spontaneous
  Country: TW (occurrence: TW)
  Receive Date: 20171214
  Receipt Date: 20171214
  Transmission Date: 20180321
  Serious: Yes (Other)
  Sender: FDA-Public Use
  Company Number: TW-ROCHE-2038683

PATIENT
  Age: 35 Year
  Sex: Female
  Weight: 61 kg

DRUGS (11)
  1. LAMIVUDINE. [Concomitant]
     Active Substance: LAMIVUDINE
     Indication: HEPATITIS B
     Route: 048
  2. CYCLOPHOSPHAMIDE. [Suspect]
     Active Substance: CYCLOPHOSPHAMIDE
     Indication: DIFFUSE LARGE B-CELL LYMPHOMA
     Dosage: DAY 3 IN EVERY 21-DAYS CYCLE
     Route: 042
     Dates: start: 20060608, end: 20061130
  3. METOCLOPRAMIDE. [Concomitant]
     Active Substance: METOCLOPRAMIDE
     Indication: PROPHYLACTIC CHEMOTHERAPY
     Dosage: DAY 3 IN EVERY 21-DAYS CYCLE
     Route: 042
  4. PREDNISOLONE. [Suspect]
     Active Substance: PREDNISOLONE
     Indication: DIFFUSE LARGE B-CELL LYMPHOMA
     Dosage: DAY 4 TO DAY 7 IN EVERY 21-DAYS CYCLE
     Route: 048
     Dates: start: 20060609, end: 20061204
  5. RITUXIMAB. [Suspect]
     Active Substance: RITUXIMAB
     Indication: DIFFUSE LARGE B-CELL LYMPHOMA
     Dosage: DAY 1 IN EVERY 21-DAYS CYCLE
     Route: 042
     Dates: start: 20060606, end: 20061128
  6. DEXAMETHASONE. [Concomitant]
     Active Substance: DEXAMETHASONE
     Indication: PROPHYLACTIC CHEMOTHERAPY
     Dosage: DAY 1 IN EVERY 21-DAYS CYCLE
     Route: 042
  7. CHLORPHENIRAMINE. [Concomitant]
     Active Substance: CHLORPHENIRAMINE
     Indication: PROPHYLACTIC CHEMOTHERAPY
     Dosage: DAY 1 AND 3 IN EVERY 21-DAYS CYCLE
     Route: 042
  8. TROPISETRON [Concomitant]
     Active Substance: TROPISETRON
     Indication: PROPHYLACTIC CHEMOTHERAPY
     Dosage: DAY 3 IN EVERY 21-DAYS CYCLE
     Route: 042
  9. VINCRISTINE [Suspect]
     Active Substance: VINCRISTINE
     Indication: DIFFUSE LARGE B-CELL LYMPHOMA
     Dosage: DAY 3 IN EVERY 21-DAYS CYCLE
     Route: 042
     Dates: start: 20060608, end: 20061130
  10. EPIRUBICIN [Suspect]
     Active Substance: EPIRUBICIN
     Indication: DIFFUSE LARGE B-CELL LYMPHOMA
     Dosage: DAY 3 IN EVERY 21-DAYS CYCLE
     Route: 042
     Dates: start: 20060608, end: 20061130
  11. DEXAMETHASONE. [Concomitant]
     Active Substance: DEXAMETHASONE
     Dosage: DAY 3 IN EVERY 21-DAYS CYCLE
     Route: 042

REACTIONS (2)
  - Leukopenia [Recovered/Resolved]
  - Alanine aminotransferase increased [Recovered/Resolved]

NARRATIVE: CASE EVENT DATE: 20060620
